FAERS Safety Report 6635066-1 (Version None)
Quarter: 2010Q1

REPORT INFORMATION
  Report Type: 
  Country: None (occurrence: None)
  Receive Date: 20100312
  Receipt Date: 20100312
  Transmission Date: 20100710
  Serious: No
  Sender: FDA-Public Use
  Company Number: None

PATIENT
  Age: 52 Year
  Sex: Female
  Weight: 90.7194 kg

DRUGS (3)
  1. LEVAQUIN [Suspect]
     Indication: PNEUMONIA
     Dosage: LEVAQUIN 500 MG QD PO
     Route: 048
     Dates: start: 20100223, end: 20100301
  2. LEVAQUIN [Suspect]
     Indication: SINUSITIS
     Dosage: LEVAQUIN 500 MG QD PO
     Route: 048
     Dates: start: 20100223, end: 20100301
  3. LEVAQUIN [Suspect]
     Indication: SINUSITIS
     Dosage: LEVAQUIN 750 MG QD PO, 1 DOSE
     Route: 048

REACTIONS (9)
  - ASTHENIA [None]
  - CHILLS [None]
  - DISORIENTATION [None]
  - DIZZINESS [None]
  - HEART RATE INCREASED [None]
  - NAUSEA [None]
  - PETECHIAE [None]
  - URINE COLOUR ABNORMAL [None]
  - VOMITING [None]
